FAERS Safety Report 10486178 (Version 1)
Quarter: 2014Q3

REPORT INFORMATION
  Report Type: Spontaneous
  Country: US (occurrence: None)
  Receive Date: 20140926
  Receipt Date: 20140926
  Transmission Date: 20150326
  Serious: Yes (Hospitalization)
  Sender: FDA-Public Use
  Company Number: 2014SA105261

PATIENT
  Age: 56 Year
  Sex: Female

DRUGS (4)
  1. TYSABRI (PREV.) [Concomitant]
  2. COPAXONE (PREV.) [Concomitant]
  3. AUBAGIO [Suspect]
     Active Substance: TERIFLUNOMIDE
     Indication: MULTIPLE SCLEROSIS
     Route: 048
     Dates: start: 20140724
  4. BETASERON (PREV.) [Concomitant]

REACTIONS (4)
  - Multiple sclerosis relapse [None]
  - Fatigue [None]
  - Unevaluable event [None]
  - Nasopharyngitis [None]
